FAERS Safety Report 21397145 (Version 3)
Quarter: 2022Q4

REPORT INFORMATION
  Report Type: Spontaneous
  Country: US (occurrence: US)
  Receive Date: 20220930
  Receipt Date: 20221230
  Transmission Date: 20230112
  Serious: No
  Sender: FDA-Public Use
  Company Number: US-PFIZER INC-202201195701

PATIENT
  Age: 61 Year
  Sex: Female
  Weight: 95.2 kg

DRUGS (9)
  1. IBRANCE [Suspect]
     Active Substance: PALBOCICLIB
     Indication: Breast cancer
     Dosage: 100 MG, CYCLIC
     Route: 048
     Dates: start: 20220506, end: 202210
  2. TRADJENTA [Concomitant]
     Active Substance: LINAGLIPTIN
     Dosage: UNK
  3. GLIPIZIDE [Concomitant]
     Active Substance: GLIPIZIDE
     Dosage: UNK
  4. MINERALS\VITAMINS [Concomitant]
     Active Substance: MINERALS\VITAMINS
     Dosage: UNK
  5. LETROZOLE [Concomitant]
     Active Substance: LETROZOLE
     Dosage: UNK
  6. ASPIRIN [Concomitant]
     Active Substance: ASPIRIN
     Dosage: UNK
  7. ALLOPURINOL [Concomitant]
     Active Substance: ALLOPURINOL
     Dosage: UNK
  8. ATORVASTATIN CALCIUM ANHYDROUS [Concomitant]
     Active Substance: ATORVASTATIN CALCIUM ANHYDROUS
     Dosage: UNK
  9. ATENOLOL AND CHLORTHALIDONE [Concomitant]
     Active Substance: ATENOLOL\CHLORTHALIDONE
     Dosage: UNK

REACTIONS (3)
  - Neoplasm progression [Not Recovered/Not Resolved]
  - Joint swelling [Recovering/Resolving]
  - Arthritis [Recovering/Resolving]

NARRATIVE: CASE EVENT DATE: 20220801
